FAERS Safety Report 5520387-6 (Version None)
Quarter: 2007Q4

REPORT INFORMATION
  Report Type: 
  Country: None (occurrence: None)
  Receive Date: 20071116
  Receipt Date: 20071116
  Transmission Date: 20080405
  Serious: Yes (Death)
  Sender: FDA-Public Use
  Company Number: None

PATIENT
  Sex: Female

DRUGS (1)
  1. CHANTIX [Suspect]
     Indication: SMOKER
     Dosage: STARTER PACK DAILY PO HAD 9 DOSES
     Route: 048
     Dates: start: 20070803, end: 20070811

REACTIONS (1)
  - DEATH [None]
